FAERS Safety Report 5650906-0 (Version None)
Quarter: 2008Q1

REPORT INFORMATION
  Report Type: 
  Country: None (occurrence: None)
  Receive Date: 20080131
  Receipt Date: 20071210
  Transmission Date: 20080703
  Serious: No
  Sender: FDA-Public Use
  Company Number: US200712002099

PATIENT
  Age: 65 Year
  Sex: Female
  Weight: 112.5 kg

DRUGS (6)
  1. BYETTA [Suspect]
     Indication: INSULIN-REQUIRING TYPE 2 DIABETES MELLITUS
     Dosage: 5 UG, 2/D, SUBCUTANEOUS ; 10 UG, 2/D, SUBCUTANEOUS
     Route: 058
     Dates: start: 20060211, end: 20060311
  2. BYETTA [Suspect]
     Indication: INSULIN-REQUIRING TYPE 2 DIABETES MELLITUS
     Dosage: 5 UG, 2/D, SUBCUTANEOUS ; 10 UG, 2/D, SUBCUTANEOUS
     Route: 058
     Dates: start: 20060312
  3. LANTUS [Concomitant]
  4. METFORMIN (METFORMIN) TABLET [Concomitant]
  5. AMARYL [Concomitant]
  6. LEVOTHYROXINE (LEVOTHYROXINE) TABLET [Concomitant]

REACTIONS (2)
  - EARLY SATIETY [None]
  - WEIGHT DECREASED [None]
